FAERS Safety Report 11514551 (Version 1)
Quarter: 2015Q3

REPORT INFORMATION
  Report Type: Spontaneous
  Country: US (occurrence: US)
  Receive Date: 20150916
  Receipt Date: 20150916
  Transmission Date: 20151125
  Serious: No
  Sender: FDA-Public Use
  Company Number: US-BAYER-2015-418076

PATIENT
  Age: 52 Year
  Sex: Female

DRUGS (4)
  1. PHENTERMINE. [Suspect]
     Active Substance: PHENTERMINE
     Indication: DECREASED APPETITE
     Dosage: UNK
     Dates: end: 201508
  2. ARMOUR THYROID [Concomitant]
     Active Substance: THYROID, PORCINE\THYROID, UNSPECIFIED
     Indication: THYROID DISORDER
     Dosage: UNK
  3. CLIMARA [Suspect]
     Active Substance: ESTRADIOL
     Indication: MENOPAUSAL SYMPTOMS
     Dosage: 0.05 MG, QD WEEKLY
     Route: 062
     Dates: end: 201508
  4. PROGESTERONE. [Suspect]
     Active Substance: PROGESTERONE
     Indication: MENOPAUSAL SYMPTOMS
     Dosage: UNK
     Dates: end: 201508

REACTIONS (6)
  - Headache [Recovered/Resolved]
  - Product adhesion issue [None]
  - Product use issue [None]
  - Off label use [None]
  - Thinking abnormal [Recovered/Resolved]
  - Heart rate increased [Recovered/Resolved]
